FAERS Safety Report 10018049 (Version 1)
Quarter: 2014Q1

REPORT INFORMATION
  Report Type: Spontaneous
  Country: US (occurrence: US)
  Receive Date: 20140318
  Receipt Date: 20140318
  Transmission Date: 20141002
  Serious: No
  Sender: FDA-Public Use
  Company Number: US-BRISTOL-MYERS SQUIBB COMPANY-18900837

PATIENT
  Age: 62 Year
  Sex: Male
  Weight: 94.33 kg

DRUGS (16)
  1. ERBITUX [Suspect]
     Indication: SQUAMOUS CELL CARCINOMA
  2. HYDROCODONE [Concomitant]
     Indication: CANCER PAIN
     Dosage: 1 DF:10/500;1/2 PILL ABOUT EVERY THREE HOURS
  3. HYDROCODONE [Concomitant]
     Indication: HEADACHE
     Dosage: 1 DF:10/500;1/2 PILL ABOUT EVERY THREE HOURS
  4. AMIODARONE [Concomitant]
  5. AMITRIPTYLINE [Concomitant]
  6. AMBIEN [Concomitant]
     Dosage: 1/2 PILL
  7. ASPIRIN [Concomitant]
  8. MULTIVITAMIN [Concomitant]
  9. METFORMIN [Concomitant]
  10. GLIPIZIDE [Concomitant]
  11. INSULIN [Concomitant]
  12. GLUCOSAMINE [Concomitant]
  13. CHONDROITIN [Concomitant]
  14. VITAMIN B1 [Concomitant]
  15. MAGNESIUM OXIDE [Concomitant]
  16. LASIX [Concomitant]

REACTIONS (3)
  - Erythema [Unknown]
  - Pruritus [Unknown]
  - Weight decreased [Unknown]
